FAERS Safety Report 6858919-8 (Version None)
Quarter: 2010Q3

REPORT INFORMATION
  Report Type: 
  Country: None (occurrence: None)
  Receive Date: 20100719
  Receipt Date: 20080217
  Transmission Date: 20110219
  Serious: No
  Sender: FDA-Public Use
  Company Number: US-PFIZER INC-2008016332

PATIENT
  Sex: Female
  Weight: 71.818 kg

DRUGS (4)
  1. CHANTIX [Suspect]
     Indication: SMOKING CESSATION THERAPY
     Dates: start: 20080207
  2. FOSAMAX [Concomitant]
  3. HYDROCODONE [Concomitant]
  4. FIORICET [Concomitant]

REACTIONS (1)
  - ABDOMINAL PAIN UPPER [None]
